FAERS Safety Report 19370199 (Version 1)
Quarter: 2021Q2

REPORT INFORMATION
  Report Type: Other
  Country: GB (occurrence: GB)
  Receive Date: 20210603
  Receipt Date: 20210603
  Transmission Date: 20210717
  Serious: Yes (Other)
  Sender: FDA-Public Use
  Company Number: GB-ROCHE-2799875

PATIENT
  Sex: Female

DRUGS (1)
  1. ROACTEMRA [Suspect]
     Active Substance: TOCILIZUMAB
     Indication: RHEUMATOID ARTHRITIS
     Route: 058
     Dates: start: 20210129

REACTIONS (5)
  - Nail infection [Unknown]
  - Peripheral swelling [Unknown]
  - Gastritis [Unknown]
  - Lower respiratory tract infection [Unknown]
  - Injection related reaction [Unknown]
